FAERS Safety Report 10402916 (Version 5)
Quarter: 2015Q1

REPORT INFORMATION
  Report Type: Report from Study
  Country: US (occurrence: US)
  Receive Date: 20140822
  Receipt Date: 20150302
  Transmission Date: 20150720
  Serious: Yes (Hospitalization, Other)
  Sender: FDA-Public Use
  Company Number: US-SA-2014SA111432

PATIENT
  Age: 51 Year
  Sex: Female

DRUGS (2)
  1. AUBAGIO [Suspect]
     Active Substance: TERIFLUNOMIDE
     Indication: MULTIPLE SCLEROSIS
     Route: 048
     Dates: start: 20140729, end: 20140824
  2. AUBAGIO [Suspect]
     Active Substance: TERIFLUNOMIDE
     Indication: MULTIPLE SCLEROSIS
     Route: 048

REACTIONS (14)
  - Dyspepsia [Unknown]
  - Memory impairment [Unknown]
  - Myalgia [Unknown]
  - Spinal cord injury cervical [Unknown]
  - Hypoaesthesia [Unknown]
  - Visual impairment [Unknown]
  - Hypoaesthesia [Unknown]
  - Sinusitis [Unknown]
  - Hypertension [Unknown]
  - Abdominal discomfort [Unknown]
  - Hair texture abnormal [Unknown]
  - Alopecia [Unknown]
  - Balance disorder [Unknown]
  - Nausea [Unknown]

NARRATIVE: CASE EVENT DATE: 201407
